FAERS Safety Report 20207880 (Version 1)
Quarter: 2021Q4

REPORT INFORMATION
  Report Type: Spontaneous
  Country: US (occurrence: None)
  Receive Date: 20211220
  Receipt Date: 20211220
  Transmission Date: 20220303
  Serious: No
  Sender: FDA-Public Use
  Company Number: None

PATIENT
  Age: 72 Year
  Sex: Female

DRUGS (1)
  1. TALTZ [Suspect]
     Active Substance: IXEKIZUMAB
     Indication: Psoriasis
     Dosage: OTHER QUANTITY : 80MG (1 PEN); AT WEEK 12 THEN EVERY 4 WEEKD AS DIRECTED?FREQUENCY : AS DIRECTED;?
     Route: 058
     Dates: start: 202106

REACTIONS (1)
  - Bronchitis [None]
